FAERS Safety Report 4546585-6 (Version None)
Quarter: 2005Q1

REPORT INFORMATION
  Report Type: 
  Country: None (occurrence: None)
  Receive Date: 20050103
  Receipt Date: 20041215
  Transmission Date: 20050727
  Serious: Yes (Death, Hospitalization)
  Sender: FDA-Public Use
  Company Number: JP_041205300

PATIENT
  Age: 3 Year
  Sex: Male

DRUGS (3)
  1. ONCOVIN [Suspect]
     Dates: start: 19990122
  2. DEXAMETHASONE [Concomitant]
  3. PREDNISOLONE [Concomitant]

REACTIONS (15)
  - ABDOMINAL PAIN [None]
  - BACILLUS INFECTION [None]
  - BACTERIAL SEPSIS [None]
  - BLOOD AMYLASE INCREASED [None]
  - BLOOD PRESSURE DECREASED [None]
  - COMA [None]
  - DEPRESSED LEVEL OF CONSCIOUSNESS [None]
  - DYSPNOEA [None]
  - GRANULOCYTE COUNT DECREASED [None]
  - HAEMOGLOBIN DECREASED [None]
  - HAEMOLYSIS [None]
  - HEART RATE DECREASED [None]
  - PLATELET COUNT DECREASED [None]
  - THERAPY NON-RESPONDER [None]
  - TONIC CONVULSION [None]
